FAERS Safety Report 9111939 (Version 1)
Quarter: 2013Q1

REPORT INFORMATION
  Report Type: Spontaneous
  Country: US (occurrence: US)
  Receive Date: 20130219
  Receipt Date: 20130219
  Transmission Date: 20140127
  Serious: No
  Sender: FDA-Public Use
  Company Number: US-BRISTOL-MYERS SQUIBB COMPANY-16671612

PATIENT
  Age: 63 Year
  Sex: Female
  Weight: 68.03 kg

DRUGS (3)
  1. ORENCIA [Suspect]
     Route: 042
     Dates: start: 201204
  2. LYRICA [Concomitant]
     Indication: FIBROMYALGIA
  3. CYMBALTA [Concomitant]
     Indication: FIBROMYALGIA

REACTIONS (1)
  - Tongue ulceration [Unknown]
